FAERS Safety Report 4512448-5 (Version None)
Quarter: 2004Q4

REPORT INFORMATION
  Report Type: 
  Country: None (occurrence: None)
  Receive Date: 20041008
  Receipt Date: 20040617
  Transmission Date: 20050328
  Serious: Yes (Life-Threatening, Hospitalization)
  Sender: FDA-Public Use
  Company Number: 340384

PATIENT
  Age: 40 Year
  Sex: Male
  Weight: 90.3 kg

DRUGS (30)
  1. FUZEON [Suspect]
     Indication: DRUG USE FOR UNKNOWN INDICATION
     Dosage: SUBCUTANEOUS
     Route: 058
     Dates: start: 20030415
  2. KALETRA [Concomitant]
  3. AGENERASE [Concomitant]
  4. VIDEX EC [Concomitant]
  5. LASIX [Concomitant]
  6. GLUCOTROL [Concomitant]
  7. INVIRASE [Concomitant]
  8. RETROVIR [Concomitant]
  9. EPIVIR [Concomitant]
  10. CRIXIVAN [Concomitant]
  11. ZERIT [Concomitant]
  12. VIRACEPT [Concomitant]
  13. VIDEX [Concomitant]
  14. NORVIR [Concomitant]
  15. FORTOVASE [Concomitant]
  16. ZIAGEN [Concomitant]
  17. SUSTIVA [Concomitant]
  18. PREVEON [Concomitant]
  19. CELEBREX [Concomitant]
  20. FLEXERIL [Concomitant]
  21. ZETIA [Concomitant]
  22. ATACAND [Concomitant]
  23. GLIPIZIDE [Concomitant]
  24. XANAX [Concomitant]
  25. RESTORIL [Concomitant]
  26. PAXIL [Concomitant]
  27. PRAVACHOL [Concomitant]
  28. MARINOL (ALGAE/CALCIUM PHOSPHATE, MONOBASIC/IODINE NOS/PHOSPHORIC ACID [Concomitant]
  29. INSULIN [Concomitant]
  30. HYDROCORTISON (HYDROCORTISONE) [Concomitant]

REACTIONS (8)
  - CYST [None]
  - INJECTION SITE HAEMORRHAGE [None]
  - INJECTION SITE PAIN [None]
  - INJECTION SITE REACTION [None]
  - MEDICATION ERROR [None]
  - PRURITUS [None]
  - RENAL FAILURE ACUTE [None]
  - VISUAL ACUITY REDUCED [None]
